FAERS Safety Report 13637494 (Version 6)
Quarter: 2017Q4

REPORT INFORMATION
  Report Type: Other
  Country: US (occurrence: US)
  Receive Date: 20170609
  Receipt Date: 20171005
  Transmission Date: 20180320
  Serious: Yes (Hospitalization)
  Sender: FDA-Public Use
  Company Number: US-UNITED THERAPEUTICS-UNT-2017-007679

PATIENT
  Age: 35 Year
  Sex: Female
  Weight: 64.4 kg

DRUGS (5)
  1. METOCLOPRAMIDE HCL [Suspect]
     Active Substance: METOCLOPRAMIDE HYDROCHLORIDE
     Indication: PRODUCT USED FOR UNKNOWN INDICATION
     Route: 065
  2. REMODULIN [Suspect]
     Active Substance: TREPROSTINIL
     Dosage: UNK
     Route: 041
  3. OPSUMIT [Concomitant]
     Active Substance: MACITENTAN
     Indication: PRODUCT USED FOR UNKNOWN INDICATION
  4. REMODULIN [Suspect]
     Active Substance: TREPROSTINIL
     Indication: PULMONARY HYPERTENSION
     Dosage: 0.059 ?G/KG, CONTINUING
     Route: 041
     Dates: start: 20150527
  5. REMODULIN [Suspect]
     Active Substance: TREPROSTINIL
     Dosage: 0.079 ?G/KG, CONTINUING
     Route: 041

REACTIONS (17)
  - Impaired gastric emptying [Unknown]
  - Depression [Unknown]
  - Mental disorder [Unknown]
  - Palpitations [Unknown]
  - Tachycardia [Unknown]
  - Oesophageal motility disorder [Unknown]
  - Fatigue [Unknown]
  - Drug interaction [Unknown]
  - Weight decreased [Unknown]
  - Tooth abscess [Unknown]
  - Memory impairment [Unknown]
  - Suicidal ideation [Unknown]
  - Abscess jaw [Unknown]
  - Stress [Unknown]
  - Throat tightness [Unknown]
  - Decreased appetite [Unknown]
  - Tooth infection [Unknown]

NARRATIVE: CASE EVENT DATE: 2017
